FAERS Safety Report 6181865-2 (Version None)
Quarter: 2009Q2

REPORT INFORMATION
  Report Type: 
  Country: None (occurrence: None)
  Receive Date: 20090504
  Receipt Date: 20090422
  Transmission Date: 20091009
  Serious: Yes (Hospitalization)
  Sender: FDA-Public Use
  Company Number: 2009AL000330

PATIENT
  Age: 72 Year
  Sex: Female

DRUGS (13)
  1. CARBAMAZEPINE [Suspect]
     Indication: EPILEPSY
     Dosage: 200 MG; TID; PO
     Route: 048
  2. FEVERALL [Suspect]
     Indication: MIGRAINE
     Dosage: 1 GM; PRN; PO
     Route: 048
  3. VENTOLIN [Concomitant]
  4. CALCICHEW [Concomitant]
  5. SERETIDE [Concomitant]
  6. CODEINE SUL TAB [Concomitant]
  7. GAVISCON [Concomitant]
  8. PANTOPRAZOLE SODIUM [Concomitant]
  9. RISEDRONATE SODIUM [Concomitant]
  10. LEVOTHYROXINE SODIUM [Concomitant]
  11. WARFARIN SODIUM [Concomitant]
  12. ZOLMITRIPTAN [Concomitant]
  13. ALENDRONIC ACID [Concomitant]

REACTIONS (3)
  - CEREBROVASCULAR ACCIDENT [None]
  - COUGH [None]
  - DYSPNOEA [None]
